FAERS Safety Report 7485668-8 (Version None)
Quarter: 2011Q2

REPORT INFORMATION
  Report Type: 
  Country: None (occurrence: None)
  Receive Date: 20110517
  Receipt Date: 20090930
  Transmission Date: 20111010
  Serious: Yes (Other)
  Sender: FDA-Public Use
  Company Number: US-BAYER-201041894NA

PATIENT
  Age: 40 Year
  Sex: Male
  Weight: 61 kg

DRUGS (21)
  1. ESMOLOL [Concomitant]
     Dosage: 40 MG, UNK
     Route: 042
     Dates: start: 20050205, end: 20050205
  2. INSULIN [Concomitant]
     Dosage: 4 UNITS/HR
     Route: 042
     Dates: start: 20050205, end: 20050205
  3. TRASYLOL [Suspect]
     Indication: MITRAL VALVE REPLACEMENT
     Dosage: 1ML INITIAL TEST DOSE, 100 ML LOADING DOSE
     Dates: start: 20050205, end: 20050205
  4. HEPARIN [Concomitant]
     Dosage: 19,000 UNITS
     Route: 042
     Dates: start: 20050205, end: 20050205
  5. MIDAZOLAM HCL [Concomitant]
     Dosage: 10 MG, UNK
     Route: 042
     Dates: start: 20050205, end: 20050205
  6. PHENYLEPHRINE HCL [Concomitant]
     Dosage: 20 MG, UNK
     Route: 042
     Dates: start: 20050205, end: 20050205
  7. PROTAMINE SULFATE [Concomitant]
     Dosage: 400 MG, UNK
     Route: 042
     Dates: start: 20050205, end: 20050205
  8. DIGOXIN [Concomitant]
     Dosage: 0.125 MG, UNK
     Route: 048
     Dates: start: 20050126
  9. GENTAMICIN [Concomitant]
     Dosage: 80 MG, Q8H
     Route: 042
     Dates: start: 20050127, end: 20050209
  10. MUCOMYST [Concomitant]
     Dosage: 600 MG, BID, INHALER
     Dates: start: 20050119
  11. VANCOMYCIN [Concomitant]
     Dosage: 3 G, UNK
     Dates: start: 20050205, end: 20050205
  12. DEMADEX [Concomitant]
     Dosage: 10 MG, QD
     Route: 048
     Dates: start: 20050126
  13. LASIX [Concomitant]
     Dosage: 40 MG, QD
     Route: 048
     Dates: start: 20050207
  14. NAFCILLIN [Concomitant]
     Dosage: 6 G, QD
     Route: 048
     Dates: start: 20050131
  15. OXACILLIN [Concomitant]
     Dosage: 2 G, Q4HR
     Route: 042
     Dates: start: 20050127, end: 20050131
  16. HEPARIN [Concomitant]
     Dosage: 5000 U, QD
     Route: 058
  17. PANCURONIUM BROMIDE [Concomitant]
     Dosage: 15 MG, UNK
     Route: 042
     Dates: start: 20050205, end: 20050205
  18. SUCCINYLCHOLINE CHLORIDE [Concomitant]
     Dosage: 20 MG, UNK
     Route: 042
     Dates: start: 20050205, end: 20050205
  19. OXACILLIN [Concomitant]
     Dosage: 1 G, Q4HR
     Route: 042
     Dates: start: 20050126, end: 20050126
  20. K-DUR [Concomitant]
     Dosage: 20 MEQ, UNK
     Route: 048
     Dates: start: 20050126
  21. FENTANYL [Concomitant]
     Dosage: 50 MG/ML, UNK
     Route: 042
     Dates: start: 20050205, end: 20050205

REACTIONS (14)
  - RENAL INJURY [None]
  - MULTI-ORGAN FAILURE [None]
  - FEAR [None]
  - INJURY [None]
  - RENAL IMPAIRMENT [None]
  - ANXIETY [None]
  - DEPRESSION [None]
  - FEAR OF DEATH [None]
  - PAIN [None]
  - RENAL FAILURE [None]
  - UNEVALUABLE EVENT [None]
  - EMOTIONAL DISTRESS [None]
  - NERVOUSNESS [None]
  - ANHEDONIA [None]
